FAERS Safety Report 16537891 (Version 2)
Quarter: 2019Q3

REPORT INFORMATION
  Report Type: Spontaneous
  Country: GB (occurrence: GB)
  Receive Date: 20190708
  Receipt Date: 20190813
  Transmission Date: 20191004
  Serious: Yes (Other)
  Sender: FDA-Public Use
  Company Number: GB-SA-2019SA178474

PATIENT
  Sex: Male

DRUGS (2)
  1. CEREZYME [Suspect]
     Active Substance: IMIGLUCERASE
     Dosage: 1200 IU
     Route: 065
  2. CEREZYME [Suspect]
     Active Substance: IMIGLUCERASE
     Dosage: 1600 IU
     Route: 065

REACTIONS (4)
  - Lower respiratory tract infection [Unknown]
  - Body temperature increased [Recovered/Resolved]
  - Visual impairment [Unknown]
  - Vision blurred [Unknown]
